FAERS Safety Report 17397822 (Version 2)
Quarter: 2020Q1

REPORT INFORMATION
  Report Type: Report from Study
  Country: US (occurrence: US)
  Receive Date: 20200210
  Receipt Date: 20200210
  Transmission Date: 20200409
  Serious: No
  Sender: FDA-Public Use
  Company Number: US-009507513-2002USA000364

PATIENT
  Age: 78 Year
  Sex: Female

DRUGS (3)
  1. LENVATINIB MESYLATE [Suspect]
     Active Substance: LENVATINIB MESYLATE
     Indication: ENDOMETRIAL CANCER
     Dosage: 20 MILLIGRAM DAILY
     Route: 048
     Dates: start: 20200205
  2. LISINOPRIL. [Concomitant]
     Active Substance: LISINOPRIL
     Indication: HYPERTENSION
     Dosage: 40 MILLIGRAM DAILY
     Route: 048
  3. PEMBROLIZUMAB. [Suspect]
     Active Substance: PEMBROLIZUMAB
     Indication: ENDOMETRIAL CANCER
     Dosage: 200 MILLIGRAM, EVERY 3 WEEKS; STRENGTH: 100 MG
     Route: 042
     Dates: start: 20200129

REACTIONS (8)
  - Dysphonia [Unknown]
  - Vaginal discharge [Unknown]
  - Dysphagia [Unknown]
  - Diarrhoea [Unknown]
  - Product use issue [Unknown]
  - Vaginal haemorrhage [Unknown]
  - Emotional disorder [Unknown]
  - Central venous catheterisation [Unknown]

NARRATIVE: CASE EVENT DATE: 2020
